FAERS Safety Report 4658434-6 (Version None)
Quarter: 2005Q2

REPORT INFORMATION
  Report Type: 
  Country: None (occurrence: None)
  Receive Date: 20050510
  Receipt Date: 20050510
  Transmission Date: 20051028
  Serious: Yes (Hospitalization)
  Sender: FDA-Public Use
  Company Number: None

PATIENT
  Age: 63 Year
  Sex: Male
  Weight: 101.6057 kg

DRUGS (2)
  1. NAFCILLIN SODIUM [Suspect]
     Indication: ENDOCARDITIS
     Dosage: 8 G IV DAILY
     Dates: start: 20050405
  2. NAFCILLIN SODIUM [Suspect]
     Indication: STAPHYLOCOCCAL INFECTION
     Dosage: 8 G IV DAILY
     Dates: start: 20050405

REACTIONS (3)
  - ARTHRALGIA [None]
  - JOINT SWELLING [None]
  - SERUM SICKNESS [None]
